FAERS Safety Report 22236164 (Version 1)
Quarter: 2023Q2

REPORT INFORMATION
  Report Type: Other
  Country: FR (occurrence: None)
  Receive Date: 20230420
  Receipt Date: 20230420
  Transmission Date: 20230722
  Serious: Yes (Other)
  Sender: FDA-Public Use
  Company Number: FR-ROCHE-3333567

PATIENT
  Age: 76 Year
  Sex: Female

DRUGS (2)
  1. GAVRETO [Suspect]
     Active Substance: PRALSETINIB
     Indication: Thyroid cancer metastatic
     Route: 065
  2. VANDETANIB [Concomitant]
     Active Substance: VANDETANIB

REACTIONS (2)
  - Myopathy toxic [Recovering/Resolving]
  - Pulmonary toxicity [Recovering/Resolving]
